FAERS Safety Report 20318585 (Version 2)
Quarter: 2022Q1

REPORT INFORMATION
  Report Type: Spontaneous
  Country: BR (occurrence: BR)
  Receive Date: 20220110
  Receipt Date: 20220124
  Transmission Date: 20220423
  Serious: Yes (Hospitalization, Other)
  Sender: FDA-Public Use
  Company Number: BR-NOVARTISPH-NVSC2022BR003518

PATIENT
  Sex: Female

DRUGS (4)
  1. KISQALI [Suspect]
     Active Substance: RIBOCICLIB
     Indication: Metastases to bone
     Dosage: 600 ML, QD
     Route: 048
     Dates: start: 20191206, end: 20220103
  2. ANASTROZOLE [Suspect]
     Active Substance: ANASTROZOLE
     Indication: Product used for unknown indication
     Dosage: UNK
     Route: 065
  3. FULVESTRANT [Suspect]
     Active Substance: FULVESTRANT
     Indication: Metastases to bone
     Dosage: UNK
     Route: 030
     Dates: end: 202010
  4. RIVOTRIL [Concomitant]
     Active Substance: CLONAZEPAM
     Indication: Insomnia
     Dosage: 0.5 ML, QD (NIGHT)
     Route: 048
     Dates: start: 201905

REACTIONS (7)
  - Hypersensitivity [Recovered/Resolved]
  - Tongue erythema [Recovered/Resolved]
  - Glossitis [Recovered/Resolved]
  - Hypertrophy of tongue papillae [Recovered/Resolved]
  - Tongue discolouration [Recovered/Resolved]
  - Dry mouth [Recovered/Resolved]
  - Feeding disorder [Recovered/Resolved]

NARRATIVE: CASE EVENT DATE: 20191201
